FAERS Safety Report 8471544-0 (Version None)
Quarter: 2012Q2

REPORT INFORMATION
  Report Type: 
  Country: None (occurrence: None)
  Receive Date: 20120627
  Receipt Date: 20120615
  Transmission Date: 20120825
  Serious: No
  Sender: FDA-Public Use
  Company Number: US-ASTRAZENECA-2012SE40577

PATIENT
  Age: 60 Year
  Sex: Male

DRUGS (2)
  1. VICTOZA [Concomitant]
  2. BRILINTA [Suspect]
     Route: 048

REACTIONS (4)
  - ADVERSE EVENT [None]
  - EPISTAXIS [None]
  - DYSPNOEA [None]
  - HYPOCOAGULABLE STATE [None]
